FAERS Safety Report 12167924 (Version 1)
Quarter: 2016Q1

REPORT INFORMATION
  Report Type: Spontaneous
  Country: US (occurrence: None)
  Receive Date: 20160309
  Receipt Date: 20160309
  Transmission Date: 20160526
  Serious: No
  Sender: FDA-Public Use
  Company Number: None

PATIENT
  Sex: Female
  Weight: 88.45 kg

DRUGS (3)
  1. VALSARTEN [Suspect]
     Active Substance: VALSARTAN
     Indication: HYPERTENSION
     Dosage: 1 PILL ONCE DAILY BY MOUTH
     Route: 048
     Dates: start: 2014, end: 2014
  2. DIOVAN [Concomitant]
     Active Substance: VALSARTAN
  3. GNC WOMEN^S ULTRA MEGA 50 PLUS [Concomitant]

REACTIONS (7)
  - Malaise [None]
  - Product substitution issue [None]
  - Inability to afford medication [None]
  - Vomiting [None]
  - Blood pressure inadequately controlled [None]
  - Dizziness [None]
  - Abdominal distension [None]

NARRATIVE: CASE EVENT DATE: 2014
